FAERS Safety Report 9254184 (Version 1)
Quarter: 2013Q2

REPORT INFORMATION
  Report Type: Spontaneous
  Country: US (occurrence: None)
  Receive Date: 20130422
  Receipt Date: 20130422
  Transmission Date: 20140414
  Serious: Yes (Hospitalization, Other)
  Sender: FDA-Public Use
  Company Number: COR_00004_2013

PATIENT
  Age: 22 Year
  Sex: Male

DRUGS (12)
  1. ETOPOSIDE [Suspect]
     Indication: HISTIOCYTOSIS HAEMATOPHAGIC
     Dosage: (75 MG/M2,  [DAYS 1, 4, AND 8])
  2. MICAFUNGIN [Concomitant]
  3. ACYCLOVIR [Concomitant]
  4. CALCITRIOL [Concomitant]
  5. LANTUS [Concomitant]
  6. LANSOPRAZOLE [Concomitant]
  7. LEVOFLOXACIN [Concomitant]
  8. CEFEPIME [Concomitant]
  9. VANCOMYCIN [Concomitant]
  10. COTRIMOXAZOLE [Concomitant]
  11. ATOVAQUONE [Concomitant]
  12. METHOTREXATE [Concomitant]

REACTIONS (12)
  - Posterior reversible encephalopathy syndrome [None]
  - Influenza like illness [None]
  - Oropharyngeal pain [None]
  - Nausea [None]
  - Vomiting [None]
  - Diarrhoea [None]
  - Hypovolaemic shock [None]
  - Splenomegaly [None]
  - Pancytopenia [None]
  - Epstein-Barr virus infection [None]
  - Hypertension [None]
  - Blindness [None]
